APPROVED DRUG PRODUCT: STATROL
Active Ingredient: NEOMYCIN SULFATE; POLYMYXIN B SULFATE
Strength: EQ 3.5MG BASE/ML;16,250 UNITS/ML
Dosage Form/Route: SOLUTION/DROPS;OPHTHALMIC
Application: A062339 | Product #001
Applicant: ALCON LABORATORIES INC
Approved: Nov 30, 1984 | RLD: No | RS: No | Type: DISCN